FAERS Safety Report 4377264-6 (Version None)
Quarter: 2004Q2

REPORT INFORMATION
  Report Type: 
  Country: None (occurrence: None)
  Receive Date: 20040614
  Receipt Date: 20040614
  Transmission Date: 20050107
  Serious: No
  Sender: FDA-Public Use
  Company Number: None

PATIENT
  Age: 51 Year
  Sex: Male
  Weight: 108.8633 kg

DRUGS (1)
  1. PRILOSEC [Suspect]
     Dosage: 1 DAILY

REACTIONS (2)
  - DIARRHOEA [None]
  - LOOSE STOOLS [None]
